FAERS Safety Report 6747626-8 (Version None)
Quarter: 2010Q2

REPORT INFORMATION
  Report Type: 
  Country: None (occurrence: None)
  Receive Date: 20100528
  Receipt Date: 20100518
  Transmission Date: 20101027
  Serious: Yes (Other)
  Sender: FDA-Public Use
  Company Number: PHHY2009CA34576

PATIENT
  Sex: Male

DRUGS (1)
  1. SANDOSTATIN LAR [Suspect]
     Indication: CARCINOID TUMOUR
     Dosage: 30 MG, EVERY 3 WEEKS
     Route: 030
     Dates: start: 20010320

REACTIONS (8)
  - BACK PAIN [None]
  - BLOOD PRESSURE SYSTOLIC INCREASED [None]
  - CARDIOVERSION [None]
  - HEART RATE IRREGULAR [None]
  - HYPOAESTHESIA [None]
  - INJECTION SITE PAIN [None]
  - PAIN [None]
  - PAIN IN EXTREMITY [None]
